FAERS Safety Report 18067906 (Version 2)
Quarter: 2020Q3

REPORT INFORMATION
  Report Type: Spontaneous
  Country: US (occurrence: US)
  Receive Date: 20200724
  Receipt Date: 20200729
  Transmission Date: 20201103
  Serious: Yes (Other)
  Sender: FDA-Public Use
  Company Number: US-PFIZER INC-2020281136

PATIENT
  Age: 64 Year
  Sex: Female

DRUGS (3)
  1. SERTRALINE HCL [Suspect]
     Active Substance: SERTRALINE HYDROCHLORIDE
     Dosage: 200 MG, UNK
  2. SERTRALINE HCL [Suspect]
     Active Substance: SERTRALINE HYDROCHLORIDE
     Indication: DEPRESSION
     Dosage: 150 MG, UNK
  3. SERTRALINE HCL [Suspect]
     Active Substance: SERTRALINE HYDROCHLORIDE
     Indication: ANXIETY
     Dosage: 100 MG, DAILY (EACH DAY AT LUNCH)
     Route: 048

REACTIONS (14)
  - Autoimmune thyroiditis [Unknown]
  - Blood pressure increased [Unknown]
  - Hypersomnia [Unknown]
  - Blood glucose increased [Unknown]
  - Dyspepsia [Unknown]
  - Cataract [Recovered/Resolved]
  - Blood triglycerides increased [Unknown]
  - Crying [Unknown]
  - Hypothyroidism [Unknown]
  - Blood cholesterol increased [Unknown]
  - Drug ineffective [Unknown]
  - Decreased appetite [Unknown]
  - Retinal detachment [Unknown]
  - Blood thyroid stimulating hormone abnormal [Unknown]

NARRATIVE: CASE EVENT DATE: 2013
